FAERS Safety Report 9762584 (Version 1)
Quarter: 2013Q4

REPORT INFORMATION
  Report Type: Spontaneous
  Country: US (occurrence: US)
  Receive Date: 20131216
  Receipt Date: 20131216
  Transmission Date: 20140711
  Serious: No
  Sender: FDA-Public Use
  Company Number: US-BIOGENIDEC-2013BI108649

PATIENT
  Sex: Female

DRUGS (5)
  1. TECFIDERA [Suspect]
     Indication: MULTIPLE SCLEROSIS
     Route: 048
     Dates: start: 201309
  2. AMPYRA [Concomitant]
  3. MACROBID [Concomitant]
  4. RAPAFLO [Concomitant]
  5. MAGNESIUM ELEMENTAL [Concomitant]

REACTIONS (3)
  - Nasopharyngitis [Unknown]
  - Flushing [Unknown]
  - White blood cell count decreased [Unknown]
